FAERS Safety Report 8655209 (Version 3)
Quarter: 2012Q4

REPORT INFORMATION
  Report Type: 
  Country: US (occurrence: US)
  Receive Date: 20120709
  Receipt Date: 20120831
  Transmission Date: 20130627
  Serious: Yes (Disabling, Other)
  Sender: FDA-Public Use
  Company Number: US-JNJFOC-20120613918

PATIENT
  Age: 65 None
  Sex: Male
  Weight: 81.65 kg

DRUGS (20)
  1. DURAGESIC [Suspect]
     Indication: PAIN
     Route: 062
  2. DURAGESIC [Suspect]
     Indication: PAIN
     Dosage: OCT/NOV-2010
     Route: 062
     Dates: start: 2010
  3. DURAGESIC [Suspect]
     Indication: PAIN
     Route: 062
     Dates: start: 2000
  4. DURAGESIC [Suspect]
     Indication: PAIN
     Route: 062
     Dates: start: 2012
  5. DURAGESIC [Suspect]
     Indication: PAIN
     Route: 062
     Dates: start: 2000, end: 200402
  6. DURAGESIC [Suspect]
     Indication: PAIN
     Route: 062
     Dates: start: 2000, end: 2004
  7. FENTANYL [Suspect]
     Indication: PAIN
     Route: 062
  8. DURAGESIC [Suspect]
     Indication: PAIN
     Route: 062
     Dates: start: 20120626
  9. TYLENOL [Suspect]
     Route: 048
  10. TYLENOL [Suspect]
     Indication: PAIN
     Route: 048
  11. OXYCODONE [Suspect]
     Indication: PAIN
     Dosage: 10/325 mg
     Route: 065
  12. OXYCODONE [Suspect]
     Indication: PAIN
     Dosage: 10/325 mg as needed
     Route: 065
  13. FENTANYL [Suspect]
     Indication: PAIN
     Route: 062
  14. MYLAN FENTANYL TRANSDERMAL SYSTEM [Suspect]
     Indication: PAIN
     Route: 062
  15. ALEVE [Concomitant]
     Indication: PAIN
     Route: 048
  16. VITAMINS NOS [Concomitant]
     Indication: PRODUCT USED FOR UNKNOWN INDICATION
     Route: 065
  17. CYMBALTA [Concomitant]
     Indication: MOBILITY DECREASED
     Route: 065
     Dates: start: 201110
  18. METFORMIN [Concomitant]
     Indication: DIABETES MELLITUS
     Dosage: half dose for few months
     Route: 065
  19. GLIMEPIRIDE [Concomitant]
     Indication: DIABETES MELLITUS
     Dosage: half dose for few months
     Route: 065
  20. CLONAZEPAM [Concomitant]
     Indication: ANXIETY
     Dosage: 0.5-1.0 dose as necessary about 2 full pills a day (total 2 mg)
     Route: 065

REACTIONS (8)
  - Pain [Recovered/Resolved]
  - Diabetes mellitus [Recovering/Resolving]
  - Mobility decreased [Recovered/Resolved]
  - Fall [Recovered/Resolved]
  - Head injury [Recovered/Resolved]
  - Product quality issue [Not Recovered/Not Resolved]
  - Drug ineffective [Recovered/Resolved]
  - Wrong technique in drug usage process [Unknown]
